FAERS Safety Report 8824059 (Version 1)
Quarter: 2012Q4

REPORT INFORMATION
  Report Type: 
  Country: US (occurrence: US)
  Receive Date: 20121004
  Receipt Date: 20121004
  Transmission Date: 20130627
  Serious: No
  Sender: FDA-Public Use
  Company Number: US-009507513-1210USA000192

PATIENT

DRUGS (2)
  1. SAPHRIS [Suspect]
     Dosage: UNK UNK, prn
     Route: 048
  2. ATIVAN [Concomitant]

REACTIONS (2)
  - Extrapyramidal disorder [Unknown]
  - Incorrect route of drug administration [Unknown]
